FAERS Safety Report 16476716 (Version 2)
Quarter: 2019Q3

REPORT INFORMATION
  Report Type: Report from Study
  Country: None (occurrence: US)
  Receive Date: 20190626
  Receipt Date: 20190729
  Transmission Date: 20191004
  Serious: Yes (Hospitalization, Other)
  Sender: FDA-Public Use
  Company Number: US-ABBVIE-19K-163-2826402-00

PATIENT
  Age: 85 Year
  Sex: Female
  Weight: 61.29 kg

DRUGS (4)
  1. HUMIRA [Suspect]
     Active Substance: ADALIMUMAB
     Indication: PSORIATIC ARTHROPATHY
  2. HUMIRA [Suspect]
     Active Substance: ADALIMUMAB
     Indication: ANKYLOSING SPONDYLITIS
  3. HUMIRA [Suspect]
     Active Substance: ADALIMUMAB
     Indication: PSORIASIS
  4. HUMIRA [Suspect]
     Active Substance: ADALIMUMAB
     Indication: CROHN^S DISEASE
     Route: 058

REACTIONS (14)
  - Gastrointestinal disorder [Recovered/Resolved]
  - Abdominal rigidity [Recovered/Resolved]
  - Diarrhoea [Recovered/Resolved]
  - Vomiting [Recovered/Resolved]
  - Abdominal rigidity [Recovered/Resolved]
  - Diarrhoea [Recovered/Resolved]
  - Crohn^s disease [Unknown]
  - Renal failure [Recovered/Resolved]
  - Oedema [Unknown]
  - Intestinal obstruction [Recovered/Resolved]
  - Vomiting [Recovered/Resolved]
  - Hernia [Unknown]
  - Blood glucose decreased [Recovered/Resolved]
  - Dehydration [Recovered/Resolved]

NARRATIVE: CASE EVENT DATE: 2017
